FAERS Safety Report 24398745 (Version 1)
Quarter: 2024Q4

REPORT INFORMATION
  Report Type: Spontaneous
  Country: UA (occurrence: UA)
  Receive Date: 20241004
  Receipt Date: 20241004
  Transmission Date: 20250115
  Serious: Yes (Other)
  Sender: VERITY PHARMACEUTICALS
  Company Number: UA-VER-202400001

PATIENT
  Sex: Female

DRUGS (1)
  1. TRIPTORELIN PAMOATE [Suspect]
     Active Substance: TRIPTORELIN PAMOATE
     Indication: Product used for unknown indication
     Dosage: POWDER AND SOLVENT FOR SUSPENSION FOR?INJECTION
     Route: 065

REACTIONS (1)
  - Catamenial pneumothorax [Unknown]
